FAERS Safety Report 5392316-X (Version None)
Quarter: 2007Q3

REPORT INFORMATION
  Report Type: 
  Country: None (occurrence: None)
  Receive Date: 20070720
  Receipt Date: 20070709
  Transmission Date: 20080115
  Serious: Yes (Other)
  Sender: FDA-Public Use
  Company Number: ZA-ROCHE-506446

PATIENT
  Age: 61 Year
  Sex: Male

DRUGS (1)
  1. XELODA [Suspect]
     Indication: COLON CANCER
     Dosage: DOSE RPTD AS 2500 MG IN MORNING, 2000 MG AT NIGHT.
     Route: 048
     Dates: start: 20070611, end: 20070625

REACTIONS (2)
  - DIARRHOEA [None]
  - PENILE ULCERATION [None]
